FAERS Safety Report 6801937-6 (Version None)
Quarter: 2010Q2

REPORT INFORMATION
  Report Type: 
  Country: None (occurrence: None)
  Receive Date: 20100629
  Receipt Date: 20100628
  Transmission Date: 20101027
  Serious: Yes (Other)
  Sender: FDA-Public Use
  Company Number: NZ-ROXANE LABORATORIES, INC.-2010-RO-00773RO

PATIENT
  Age: 54 Year
  Sex: Male

DRUGS (1)
  1. AZATHIOPRINE [Suspect]
     Indication: CROHN'S DISEASE
     Dates: start: 20060101

REACTIONS (5)
  - ASCITES [None]
  - NODULAR REGENERATIVE HYPERPLASIA [None]
  - PORTAL HYPERTENSION [None]
  - SPLENOMEGALY [None]
  - THROMBOCYTOPENIA [None]
